FAERS Safety Report 7587151-8 (Version None)
Quarter: 2011Q3

REPORT INFORMATION
  Report Type: 
  Country: None (occurrence: None)
  Receive Date: 20110701
  Receipt Date: 20110630
  Transmission Date: 20111222
  Serious: Yes (Other)
  Sender: FDA-Public Use
  Company Number: JP-ABBOTT-11P-087-0724762-00

PATIENT
  Sex: Female
  Weight: 53 kg

DRUGS (6)
  1. SCOPOLAMINE BUTYLBROMIDE [Concomitant]
     Indication: GASTRITIS
     Dosage: 1 TABLET DAILY
     Route: 048
  2. HUMIRA [Suspect]
     Indication: PSORIATIC ARTHROPATHY
     Route: 058
     Dates: start: 20110117, end: 20110117
  3. ISONIAZID [Concomitant]
     Indication: ANTIBIOTIC PROPHYLAXIS
     Route: 048
     Dates: start: 20110112
  4. ANTIBIOTICS/RESISTANT LACTIC ACID BACTERIAE [Concomitant]
     Indication: ENTEROCOLITIS
     Route: 048
  5. HUMIRA [Suspect]
     Indication: PUSTULAR PSORIASIS
     Dates: start: 20110131
  6. ALENDRONATE SODIUM [Concomitant]
     Indication: OSTEOPOROSIS
     Dosage: 35MG/WEEK
     Route: 048

REACTIONS (4)
  - DIZZINESS [None]
  - TINNITUS [None]
  - SUDDEN HEARING LOSS [None]
  - NAUSEA [None]
